FAERS Safety Report 22389960 (Version 1)
Quarter: 2023Q2

REPORT INFORMATION
  Report Type: Spontaneous
  Country: FR (occurrence: FR)
  Receive Date: 20230531
  Receipt Date: 20230531
  Transmission Date: 20230722
  Serious: Yes (Hospitalization)
  Sender: FDA-Public Use
  Company Number: None

PATIENT
  Age: 4 Year
  Sex: Male
  Weight: 13.5 kg

DRUGS (1)
  1. SEVOFLURANE [Suspect]
     Active Substance: SEVOFLURANE
     Indication: Sedation
     Dosage: 0.4 TO 0.8%, PHARMACEUTICAL FORM: INHALATION SOLUTION (INHALATION VAPOR LIQUID)
     Dates: start: 20221222, end: 20221228

REACTIONS (3)
  - Irregular sleep wake rhythm disorder [Recovering/Resolving]
  - Dyskinesia [Recovering/Resolving]
  - Confusional state [Recovering/Resolving]

NARRATIVE: CASE EVENT DATE: 20221228
